FAERS Safety Report 5199969-X (Version None)
Quarter: 2007Q1

REPORT INFORMATION
  Report Type: 
  Country: None (occurrence: None)
  Receive Date: 20070105
  Receipt Date: 20061227
  Transmission Date: 20070707
  Serious: Yes (Hospitalization)
  Sender: FDA-Public Use
  Company Number: DE-MERCK-0608DEU00191

PATIENT
  Age: 59 Year
  Sex: Male

DRUGS (5)
  1. ZETIA [Suspect]
     Indication: HYPERLIPIDAEMIA
     Route: 048
     Dates: start: 20060823, end: 20060826
  2. NADROPARIN CALCIUM [Suspect]
     Route: 065
  3. ASPIRIN [Concomitant]
     Route: 048
  4. FLUVASTATIN SODIUM [Concomitant]
     Route: 048
  5. PHENPROCOUMON [Concomitant]
     Route: 065

REACTIONS (2)
  - DRUG INTERACTION [None]
  - HYPERSENSITIVITY [None]
